FAERS Safety Report 4820551-5 (Version None)
Quarter: 2005Q4

REPORT INFORMATION
  Report Type: 
  Country: None (occurrence: None)
  Receive Date: 20051102
  Receipt Date: 20051102
  Transmission Date: 20060501
  Serious: Yes (Life-Threatening, Hospitalization, Other)
  Sender: FDA-Public Use
  Company Number: None

PATIENT
  Age: 66 Year
  Sex: Male
  Weight: 135.1719 kg

DRUGS (2)
  1. NAPOXEN 375 MG [Suspect]
     Indication: HAEMORRHAGE
     Dosage: 375
  2. ALEVE [Suspect]
     Indication: HAEMORRHAGE
     Dosage: 220

REACTIONS (2)
  - GASTRIC ULCER [None]
  - HAEMORRHAGE [None]
